FAERS Safety Report 7986077-5 (Version None)
Quarter: 2011Q4

REPORT INFORMATION
  Report Type: 
  Country: None (occurrence: None)
  Receive Date: 20111216
  Receipt Date: 20110628
  Transmission Date: 20120403
  Serious: Yes (Other)
  Sender: FDA-Public Use
  Company Number: US-BRISTOL-MYERS SQUIBB COMPANY-15844400

PATIENT
  Age: 55 Year
  Sex: Male
  Weight: 144 kg

DRUGS (5)
  1. ABILIFY [Suspect]
     Dosage: ABILIFY 2 MG AND WAS SLOWLY INCREASED TO 20 MG
  2. NORVASC [Concomitant]
  3. CITALOPRAM [Concomitant]
  4. COREG [Concomitant]
  5. LISINOPRIL [Concomitant]

REACTIONS (2)
  - WEIGHT INCREASED [None]
  - SOMNOLENCE [None]
